FAERS Safety Report 5122824-8 (Version None)
Quarter: 2006Q4

REPORT INFORMATION
  Report Type: 
  Country: None (occurrence: None)
  Receive Date: 20061005
  Receipt Date: 20060925
  Transmission Date: 20070319
  Serious: Yes (Hospitalization)
  Sender: FDA-Public Use
  Company Number: 2006BI013569

PATIENT
  Age: 51 Year
  Sex: Female
  Weight: 45.3597 kg

DRUGS (2)
  1. AVONEX [Suspect]
     Indication: MULTIPLE SCLEROSIS
     Dosage: 30 UG;QW;IM
     Route: 030
     Dates: start: 19960101, end: 20030101
  2. AVONEX [Suspect]
     Indication: MULTIPLE SCLEROSIS
     Dosage: 30 UG;QW;IM
     Route: 030
     Dates: start: 20030101

REACTIONS (7)
  - BALANCE DISORDER [None]
  - FALL [None]
  - GAIT DISTURBANCE [None]
  - HIP FRACTURE [None]
  - INCISION SITE COMPLICATION [None]
  - URINARY INCONTINENCE [None]
  - WEIGHT DECREASED [None]
